FAERS Safety Report 9049688 (Version 4)
Quarter: 2013Q3

REPORT INFORMATION
  Report Type: Spontaneous
  Country: FR (occurrence: FR)
  Receive Date: 20130205
  Receipt Date: 20130819
  Transmission Date: 20140515
  Serious: Yes (Other)
  Sender: FDA-Public Use
  Company Number: FR-009507513-1301FRA013840

PATIENT
  Age: 59 Year
  Sex: Female

DRUGS (2)
  1. ADROVANCE [Suspect]
     Indication: OSTEOPOROSIS
     Dosage: 1 DF, ONCE
     Route: 048
     Dates: start: 20130130, end: 20130130
  2. VITAMIN D (UNSPECIFIED) [Concomitant]
     Dosage: 1 DF, QM

REACTIONS (5)
  - Loss of consciousness [Recovered/Resolved]
  - Cold sweat [Recovered/Resolved]
  - Malaise [Recovered/Resolved]
  - Haematoma [Recovering/Resolving]
  - Fall [Recovered/Resolved]
